FAERS Safety Report 23723311 (Version 1)
Quarter: 2024Q2

REPORT INFORMATION
  Report Type: Spontaneous
  Country: US (occurrence: None)
  Receive Date: 20240409
  Receipt Date: 20240409
  Transmission Date: 20240716
  Serious: No
  Sender: FDA-Public Use
  Company Number: None

PATIENT

DRUGS (2)
  1. PIPERACILLIN AND TAZOBACTAM [Suspect]
     Active Substance: PIPERACILLIN SODIUM\TAZOBACTAM SODIUM
     Dosage: OTHER STRENGTH : 4.5 G IN NS 110 ML?
  2. OXACILLIN SODIUM [Suspect]
     Active Substance: OXACILLIN SODIUM
     Route: 042

REACTIONS (2)
  - Product label on wrong product [None]
  - Product dispensing error [None]
